FAERS Safety Report 6814043-1 (Version None)
Quarter: 2010Q3

REPORT INFORMATION
  Report Type: 
  Country: None (occurrence: None)
  Receive Date: 20100702
  Receipt Date: 20100623
  Transmission Date: 20110219
  Serious: Yes (Hospitalization)
  Sender: FDA-Public Use
  Company Number: PHHY2010BR41077

PATIENT
  Sex: Male

DRUGS (2)
  1. FORASEQ [Suspect]
     Indication: BRONCHITIS
     Dosage: BID
  2. CEPHALEXIN [Concomitant]
     Dosage: 500 MG, Q6H
     Route: 048
     Dates: start: 20100608

REACTIONS (1)
  - SPINAL OPERATION [None]
